FAERS Safety Report 8069519-9 (Version None)
Quarter: 2012Q1

REPORT INFORMATION
  Report Type: 
  Country: None (occurrence: None)
  Receive Date: 20120125
  Receipt Date: 20120117
  Transmission Date: 20120608
  Serious: Yes (Other)
  Sender: FDA-Public Use
  Company Number: US-JNJFOC-20120108492

PATIENT
  Age: 23 Year
  Sex: Male

DRUGS (3)
  1. HYDROCODONE BITARTRATE AND ACETAMINOPHEN [Suspect]
     Indication: INTENTIONAL DRUG MISUSE
     Route: 048
  2. RISPERIDONE [Suspect]
     Indication: INTENTIONAL DRUG MISUSE
     Route: 048
  3. ALPRAZOLAM [Suspect]
     Indication: INTENTIONAL DRUG MISUSE
     Dosage: UP TO 42 TABLETS
     Route: 048

REACTIONS (2)
  - INTENTIONAL DRUG MISUSE [None]
  - ATRIOVENTRICULAR BLOCK [None]
